FAERS Safety Report 6761323-4 (Version None)
Quarter: 2010Q2

REPORT INFORMATION
  Report Type: 
  Country: None (occurrence: None)
  Receive Date: 20100608
  Receipt Date: 20100602
  Transmission Date: 20101027
  Serious: Yes (Hospitalization)
  Sender: FDA-Public Use
  Company Number: US-GILEAD-2010-0029554

PATIENT
  Sex: Female
  Weight: 58.2 kg

DRUGS (13)
  1. LETAIRIS [Suspect]
     Indication: PULMONARY ARTERIAL HYPERTENSION
     Route: 048
     Dates: start: 20100201
  2. ADCIRCA [Concomitant]
  3. PLAVIX [Concomitant]
  4. LASIX [Concomitant]
  5. METOPROLOL TARTRATE [Concomitant]
  6. RYTHMOL [Concomitant]
  7. SPIRIVA [Concomitant]
  8. PROAIR HFA [Concomitant]
  9. SYMBICORT [Concomitant]
  10. NEXIUM [Concomitant]
  11. FERROUS SULFATE TAB [Concomitant]
  12. KLOR-CON [Concomitant]
  13. MAG OX [Concomitant]

REACTIONS (1)
  - INTESTINAL OBSTRUCTION [None]
